FAERS Safety Report 5120233-9 (Version None)
Quarter: 2006Q4

REPORT INFORMATION
  Report Type: 
  Country: None (occurrence: None)
  Receive Date: 20061004
  Receipt Date: 20060714
  Transmission Date: 20070319
  Serious: Yes (Other)
  Sender: FDA-Public Use
  Company Number: ES-BRISTOL-MYERS SQUIBB COMPANY-13442447

PATIENT
  Age: 21 Year
  Sex: Male

DRUGS (2)
  1. ABILIFY [Suspect]
     Indication: SCHIZOPHRENIA
     Route: 048
     Dates: start: 20060315
  2. RIVOTRIL [Concomitant]

REACTIONS (2)
  - BLOOD BILIRUBIN ABNORMAL [None]
  - BLOOD CREATINE PHOSPHOKINASE INCREASED [None]
